FAERS Safety Report 7532276-6 (Version None)
Quarter: 2011Q2

REPORT INFORMATION
  Report Type: 
  Country: None (occurrence: None)
  Receive Date: 20110608
  Receipt Date: 20110429
  Transmission Date: 20111010
  Serious: No
  Sender: FDA-Public Use
  Company Number: US-TEVA-278460USA

PATIENT
  Age: 39 Year
  Sex: Female

DRUGS (1)
  1. ENJUVIA [Suspect]
     Route: 048

REACTIONS (3)
  - HOT FLUSH [None]
  - MENOPAUSAL DISORDER [None]
  - DRUG INEFFECTIVE [None]
